FAERS Safety Report 25423797 (Version 1)
Quarter: 2025Q2

REPORT INFORMATION
  Report Type: Spontaneous
  Country: GB (occurrence: GB)
  Receive Date: 20250611
  Receipt Date: 20250611
  Transmission Date: 20250717
  Serious: Yes (Death, Other)
  Sender: ASTELLAS
  Company Number: GB-ASTELLAS-2025-AER-030922

PATIENT
  Age: 87 Year
  Sex: Male
  Weight: 62 kg

DRUGS (1)
  1. ENZALUTAMIDE [Suspect]
     Active Substance: ENZALUTAMIDE
     Indication: Prostate cancer metastatic
     Route: 065

REACTIONS (11)
  - Haemorrhage intracranial [Fatal]
  - Fall [Unknown]
  - Osteoporosis [Unknown]
  - Spinal fracture [Unknown]
  - Oedema [Unknown]
  - Varicose ulceration [Unknown]
  - Sarcopenia [Unknown]
  - Asthenia [Unknown]
  - Underdose [Unknown]
  - Off label use [Unknown]
  - Drug interaction [Unknown]
